FAERS Safety Report 24963817 (Version 2)
Quarter: 2025Q1

REPORT INFORMATION
  Report Type: Spontaneous
  Country: AU (occurrence: AU)
  Receive Date: 20250213
  Receipt Date: 20250221
  Transmission Date: 20250409
  Serious: Yes (Other)
  Sender: JOHNSON AND JOHNSON
  Company Number: AU-JNJFOC-20250217913

PATIENT
  Sex: Female

DRUGS (3)
  1. DARZALEX [Suspect]
     Active Substance: DARATUMUMAB
     Indication: Plasma cell myeloma
     Route: 065
  2. BORTEZOMIB [Suspect]
     Active Substance: BORTEZOMIB
  3. DEXAMETHASONE [Suspect]
     Active Substance: DEXAMETHASONE

REACTIONS (2)
  - Atrioventricular block [Unknown]
  - Plasma cell myeloma recurrent [Unknown]
